FAERS Safety Report 26072729 (Version 1)
Quarter: 2025Q4

REPORT INFORMATION
  Report Type: Spontaneous
  Country: US (occurrence: US)
  Receive Date: 20251121
  Receipt Date: 20251121
  Transmission Date: 20260117
  Serious: No
  Sender: ALVOGEN
  Company Number: US-ALVOGEN-2025097971

PATIENT
  Sex: Female

DRUGS (2)
  1. TERIPARATIDE [Suspect]
     Active Substance: TERIPARATIDE
     Indication: Osteoporosis
     Dosage: STRENGTH: 250MCG/ML; 1ST PEN
     Route: 058
     Dates: start: 202502
  2. TERIPARATIDE [Suspect]
     Active Substance: TERIPARATIDE
     Indication: Osteoporosis
     Dosage: STRENGTH: 250MCG/ML?EXPIRATION DATE: 30-NOV-2026;
     Route: 058
     Dates: start: 2025

REACTIONS (6)
  - Dry skin [Unknown]
  - Pruritus [Unknown]
  - Injection site haemorrhage [Unknown]
  - Device defective [Unknown]
  - Liquid product physical issue [Unknown]
  - Product dose omission issue [Unknown]

NARRATIVE: CASE EVENT DATE: 20250101
